FAERS Safety Report 19909401 (Version 1)
Quarter: 2021Q4

REPORT INFORMATION
  Report Type: Spontaneous
  Country: US (occurrence: US)
  Receive Date: 20211001
  Receipt Date: 20211001
  Transmission Date: 20220303
  Serious: No
  Sender: FDA-Public Use
  Company Number: US-AMARIN PHARMA, INC.-2021AMR000287

PATIENT
  Age: 76 Year
  Sex: Female
  Weight: 58.57 kg

DRUGS (7)
  1. VASCEPA [Suspect]
     Active Substance: ICOSAPENT ETHYL
     Indication: Blood triglycerides increased
     Dates: start: 2000
  2. VASCEPA [Suspect]
     Active Substance: ICOSAPENT ETHYL
  3. VASCEPA [Suspect]
     Active Substance: ICOSAPENT ETHYL
  4. VASCEPA [Suspect]
     Active Substance: ICOSAPENT ETHYL
  5. SIMVASTATIN [Concomitant]
     Active Substance: SIMVASTATIN
     Indication: Product used for unknown indication
     Dates: start: 1955
  6. METFORMIN [Concomitant]
     Active Substance: METFORMIN HYDROCHLORIDE
     Indication: Product used for unknown indication
     Dates: start: 2011
  7. METFORMIN [Concomitant]
     Active Substance: METFORMIN HYDROCHLORIDE
     Dates: end: 2011

REACTIONS (5)
  - Arthroscopy [Recovered/Resolved]
  - Limb discomfort [Not Recovered/Not Resolved]
  - Diarrhoea [Recovered/Resolved]
  - Intentional underdose [Recovered/Resolved]
  - Intentional product misuse [Recovered/Resolved]
